FAERS Safety Report 5318875-0 (Version None)
Quarter: 2007Q2

REPORT INFORMATION
  Report Type: 
  Country: None (occurrence: None)
  Receive Date: 20070508
  Receipt Date: 20070426
  Transmission Date: 20071010
  Serious: Yes (Hospitalization)
  Sender: FDA-Public Use
  Company Number: JP-ROCHE-487375

PATIENT
  Age: 14 Year
  Sex: Male
  Weight: 53 kg

DRUGS (10)
  1. TAMIFLU [Suspect]
     Route: 048
     Dates: start: 20070306, end: 20070306
  2. PECTITE [Concomitant]
     Dosage: DRUG GENERIC NAME REPORTED AS: L-METHYLCYSTEINE HYDROCHLORIDE
     Route: 048
  3. MUCODYNE [Concomitant]
     Route: 048
  4. TOMIRON [Concomitant]
     Route: 048
  5. TRANSAMIN [Concomitant]
     Route: 048
  6. NIFLAN [Concomitant]
  7. APLACE [Concomitant]
     Route: 048
  8. GLUCOSE [Concomitant]
     Route: 041
  9. EXACIN [Concomitant]
     Dosage: DRUG GENERIC NAME REPORTED AS: ISEPAMICIN SULFATE
     Route: 041
  10. TRANSAMIN [Concomitant]
     Route: 041

REACTIONS (2)
  - ABNORMAL BEHAVIOUR [None]
  - RESTLESSNESS [None]
